FAERS Safety Report 23111177 (Version 1)
Quarter: 2023Q4

REPORT INFORMATION
  Report Type: Report from Study
  Country: FR (occurrence: FR)
  Receive Date: 20231026
  Receipt Date: 20231026
  Transmission Date: 20240109
  Serious: Yes (Death, Other)
  Sender: FDA-Public Use
  Company Number: FR-JAZZ PHARMACEUTICALS-2021-FR-011969

PATIENT

DRUGS (5)
  1. DEFITELIO [Suspect]
     Active Substance: DEFIBROTIDE SODIUM
     Indication: Venoocclusive disease
     Dosage: DOSE AND FREQUENCY UNKNOWN
     Dates: start: 20210410, end: 20210512
  2. HEPARIN SODIUM [Concomitant]
     Active Substance: HEPARIN SODIUM
  3. PROSTAGLANDIN E1 [Concomitant]
     Active Substance: ALPROSTADIL
     Indication: Venoocclusive disease
  4. URSODIOL [Concomitant]
     Active Substance: URSODIOL
     Indication: Venoocclusive disease
  5. ACETYLCYSTEINE [Concomitant]
     Active Substance: ACETYLCYSTEINE
     Indication: Venoocclusive disease

REACTIONS (2)
  - Death [Fatal]
  - Off label use [Unknown]

NARRATIVE: CASE EVENT DATE: 20210101
